FAERS Safety Report 10541827 (Version 1)
Quarter: 2014Q4

REPORT INFORMATION
  Report Type: Spontaneous
  Country: US (occurrence: US)
  Receive Date: 20141024
  Receipt Date: 20141024
  Transmission Date: 20150529
  Serious: Yes (Congenital Anomaly, Other)
  Sender: FDA-Public Use
  Company Number: US-ABBVIE-14P-163-1298242-00

PATIENT
  Sex: Male

DRUGS (1)
  1. DEPAKOTE [Suspect]
     Active Substance: DIVALPROEX SODIUM
     Indication: MATERNAL EXPOSURE TIMING UNSPECIFIED
     Route: 064

REACTIONS (29)
  - Encephalopathy [Unknown]
  - Tracheo-oesophageal fistula [Unknown]
  - Gastrooesophageal reflux disease [Unknown]
  - Economic problem [Unknown]
  - Abnormal behaviour [Unknown]
  - Injury [Unknown]
  - Autism spectrum disorder [Unknown]
  - Emotional distress [Unknown]
  - Anhedonia [Unknown]
  - Foetal exposure during pregnancy [Unknown]
  - Cognitive disorder [Unknown]
  - Impulse-control disorder [Unknown]
  - Intentional self-injury [Unknown]
  - Dysmorphism [Unknown]
  - Physical disability [Unknown]
  - Executive dysfunction [Unknown]
  - Aggression [Unknown]
  - Sleep disorder [Unknown]
  - Pain [Unknown]
  - Testicular failure [Unknown]
  - Hydrocele [Unknown]
  - Tracheal atresia [Unknown]
  - Aspiration tracheal [Unknown]
  - Illiteracy [Unknown]
  - Developmental delay [Unknown]
  - Asthma [Unknown]
  - Attention deficit/hyperactivity disorder [Unknown]
  - Mental disorder [Unknown]
  - Nervous system disorder [Unknown]
